FAERS Safety Report 6642437-6 (Version None)
Quarter: 2010Q1

REPORT INFORMATION
  Report Type: 
  Country: None (occurrence: None)
  Receive Date: 20100319
  Receipt Date: 20100311
  Transmission Date: 20100710
  Serious: Yes (Other)
  Sender: FDA-Public Use
  Company Number: US-BAXTER-2010BH006933

PATIENT
  Age: 27 Year
  Sex: Female

DRUGS (4)
  1. FENTANYL CITRATE [Suspect]
     Indication: DRUG USE FOR UNKNOWN INDICATION
     Route: 013
     Dates: start: 20100201
  2. MIDAZOLAM HYDROCHLORIDE [Suspect]
     Indication: DRUG USE FOR UNKNOWN INDICATION
     Route: 013
     Dates: start: 20100201
  3. INSULIN [Suspect]
     Indication: DRUG USE FOR UNKNOWN INDICATION
     Route: 013
     Dates: start: 20100201
  4. ANTIBIOTICS [Suspect]
     Indication: DRUG USE FOR UNKNOWN INDICATION
     Route: 013
     Dates: start: 20100225, end: 20100225

REACTIONS (4)
  - DEVICE MALFUNCTION [None]
  - INCORRECT ROUTE OF DRUG ADMINISTRATION [None]
  - PULSE ABSENT [None]
  - SKIN DISCOLOURATION [None]
